FAERS Safety Report 25825646 (Version 1)
Quarter: 2025Q3

REPORT INFORMATION
  Report Type: Spontaneous
  Country: US (occurrence: US)
  Receive Date: 20250919
  Receipt Date: 20250919
  Transmission Date: 20251020
  Serious: No
  Sender: GUERBET
  Company Number: US-GUERBET / LLC-US-20250124

PATIENT
  Age: 38 Year
  Sex: Female
  Weight: 99.79 kg

DRUGS (1)
  1. OPTIRAY 350 [Suspect]
     Active Substance: IOVERSOL
     Indication: Computerised tomogram
     Route: 042
     Dates: start: 20250630, end: 20250630

REACTIONS (1)
  - Hypersensitivity [Recovered/Resolved]

NARRATIVE: CASE EVENT DATE: 20250630
